FAERS Safety Report 19571315 (Version 3)
Quarter: 2021Q3

REPORT INFORMATION
  Report Type: Spontaneous
  Country: US (occurrence: US)
  Receive Date: 20210716
  Receipt Date: 20210915
  Transmission Date: 20211014
  Serious: No
  Sender: FDA-Public Use
  Company Number: US-BRISTOL-MYERS SQUIBB COMPANY-BMS-2021-069580

PATIENT
  Age: 50 Year
  Sex: Female

DRUGS (1)
  1. SPRYCEL [Suspect]
     Active Substance: DASATINIB
     Indication: CHRONIC MYELOID LEUKAEMIA
     Dosage: 100 MILLIGRAM, QD
     Route: 048
     Dates: start: 20210616

REACTIONS (22)
  - Nausea [Unknown]
  - Weight decreased [Unknown]
  - Pollakiuria [Unknown]
  - Headache [Unknown]
  - Peripheral swelling [Unknown]
  - Mental status changes [Unknown]
  - Stomatitis [Unknown]
  - Alopecia [Unknown]
  - Abdominal distension [Unknown]
  - Memory impairment [Unknown]
  - Cough [Unknown]
  - Depressed mood [Unknown]
  - Anxiety [Unknown]
  - Fatigue [Unknown]
  - Constipation [Unknown]
  - Heart rate increased [Unknown]
  - Dysphonia [Unknown]
  - Lymphadenopathy [Unknown]
  - Decreased appetite [Unknown]
  - Insomnia [Unknown]
  - Dysphagia [Unknown]
  - Dehydration [Unknown]
